FAERS Safety Report 8597317-6 (Version None)
Quarter: 2012Q3

REPORT INFORMATION
  Report Type: 
  Country: None (occurrence: None)
  Receive Date: 20120816
  Receipt Date: 20120810
  Transmission Date: 20120928
  Serious: Yes (Other)
  Sender: FDA-Public Use
  Company Number: US-PFIZER INC-2012195943

PATIENT
  Sex: Male

DRUGS (9)
  1. GABAPENTIN [Suspect]
     Indication: FIBROMYALGIA
  2. LYRICA [Suspect]
     Indication: FIBROMYALGIA
     Dosage: 150 MG, 2X/DAY
     Route: 048
     Dates: start: 20120601
  3. GABAPENTIN [Suspect]
     Indication: ANKYLOSING SPONDYLITIS
     Dosage: UNK
     Dates: end: 20100101
  4. LYRICA [Suspect]
     Indication: NECK PAIN
  5. LYRICA [Suspect]
     Indication: ANKYLOSING SPONDYLITIS
     Dosage: 150 MG, 2X/DAY
     Route: 048
     Dates: start: 20100101, end: 20120501
  6. GABAPENTIN [Suspect]
     Indication: BACK PAIN
  7. DICLOFENAC [Concomitant]
     Dosage: 75 MG, 2X/DAY
  8. LYRICA [Suspect]
     Indication: BACK PAIN
  9. GABAPENTIN [Suspect]
     Indication: NECK PAIN

REACTIONS (2)
  - WEIGHT DECREASED [None]
  - WEIGHT INCREASED [None]
